FAERS Safety Report 4456534-7 (Version None)
Quarter: 2004Q3

REPORT INFORMATION
  Report Type: 
  Country: None (occurrence: None)
  Receive Date: 20040921
  Receipt Date: 20040305
  Transmission Date: 20050211
  Serious: Yes (Death)
  Sender: FDA-Public Use
  Company Number: 7554

PATIENT
  Age: 64 Year
  Sex: Male

DRUGS (3)
  1. AMIODARONE [Suspect]
     Indication: ATRIAL FIBRILLATION
     Dosage: IV
     Route: 042
  2. AMIODARONE [Suspect]
     Indication: CONGESTIVE CARDIOMYOPATHY
     Dosage: IV
     Route: 042
  3. VERAPAMIL [Concomitant]

REACTIONS (15)
  - BLOOD PRESSURE IMMEASURABLE [None]
  - CARDIAC ARREST [None]
  - CARDIOGENIC SHOCK [None]
  - CARDIOMEGALY [None]
  - DEPRESSED LEVEL OF CONSCIOUSNESS [None]
  - GENERAL PHYSICAL HEALTH DETERIORATION [None]
  - HEPATIC NECROSIS [None]
  - HEPATITIS ACUTE [None]
  - HEPATITIS FULMINANT [None]
  - METABOLIC ACIDOSIS [None]
  - MITRAL VALVE DISEASE [None]
  - MYOCARDIAL INFARCTION [None]
  - RENAL IMPAIRMENT [None]
  - THERAPY NON-RESPONDER [None]
  - TRICUSPID VALVE DISEASE [None]
